FAERS Safety Report 11204627 (Version 4)
Quarter: 2015Q3

REPORT INFORMATION
  Report Type: Spontaneous
  Country: DE (occurrence: DE)
  Receive Date: 20150622
  Receipt Date: 20150901
  Transmission Date: 20151125
  Serious: Yes (Hospitalization)
  Sender: FDA-Public Use
  Company Number: DE-AMGEN-DEUSP2015059451

PATIENT
  Age: 49 Year
  Sex: Female
  Weight: 64 kg

DRUGS (11)
  1. PEGFILGRASTIM [Suspect]
     Active Substance: PEGFILGRASTIM
     Indication: PRODUCT USED FOR UNKNOWN INDICATION
     Dosage: 6 MG, UNK
     Route: 065
     Dates: start: 20150609, end: 20150609
  2. TRASTUZUMAB [Suspect]
     Active Substance: TRASTUZUMAB
     Indication: BREAST CANCER
     Dosage: LOADING DOSE, DATE OF LAST DOSE PRIOR TO SAE 08/JUN/2015 (520 MG)
     Route: 042
     Dates: start: 20150608
  3. PACLITAXEL. [Suspect]
     Active Substance: PACLITAXEL
     Indication: BREAST CANCER
     Dosage: DATE OF LAST DOSE PRIOR TO SAE 08/JUN/2015 (380 MG,1 IN 2 WK)
     Route: 042
     Dates: start: 20150608
  4. NEUPOGEN [Concomitant]
     Active Substance: FILGRASTIM
     Dosage: 6 MG, UNK
     Dates: start: 20150804, end: 20150804
  5. PERTUZUMAB [Suspect]
     Active Substance: PERTUZUMAB
     Indication: BREAST CANCER
     Dosage: DATE OF LAST DOSE PRIOR TO SAE 08/JUN/2015 (840 MG,CYCLE 1 AS PER PROTOCOL)
     Route: 042
     Dates: start: 20150608
  6. CYCLOPHOSPHAMIDE. [Concomitant]
     Active Substance: CYCLOPHOSPHAMIDE
     Indication: BREAST CANCER
     Dosage: 3340 MG, 1 IN 2 WK
     Route: 042
     Dates: start: 20150720
  7. GRANISETRON                        /01178102/ [Concomitant]
     Active Substance: GRANISETRON
     Dosage: 1 MG, UNK
     Route: 065
     Dates: start: 20150608, end: 20150608
  8. DEXAMETHASON                       /00016001/ [Concomitant]
     Active Substance: DEXAMETHASONE
     Dosage: 8 MG, UNK
     Route: 065
     Dates: start: 20150804, end: 20150806
  9. CLEMASTINE [Concomitant]
     Active Substance: CLEMASTINE
     Dosage: 2 MG, UNK
     Route: 065
     Dates: start: 20150608, end: 20150608
  10. RANITIDINE [Concomitant]
     Active Substance: RANITIDINE\RANITIDINE HYDROCHLORIDE
     Dosage: 50 MG, UNK
     Dates: start: 20150608, end: 20150608
  11. CIPROFLOXACIN. [Concomitant]
     Active Substance: CIPROFLOXACIN
     Dosage: 1 G, UNK
     Dates: start: 20150808

REACTIONS (1)
  - Dyspnoea [Recovered/Resolved]

NARRATIVE: CASE EVENT DATE: 20150613
